FAERS Safety Report 17499671 (Version 1)
Quarter: 2020Q1

REPORT INFORMATION
  Report Type: Spontaneous
  Country: US (occurrence: US)
  Receive Date: 20200305
  Receipt Date: 20200305
  Transmission Date: 20200409
  Serious: No
  Sender: FDA-Public Use
  Company Number: US-GLAXOSMITHKLINE-US2020033026

PATIENT
  Age: 83 Year
  Sex: Male

DRUGS (2)
  1. FLOVENT DISKUS [Suspect]
     Active Substance: FLUTICASONE PROPIONATE
     Indication: STOMA CLOSURE
  2. FLOVENT DISKUS [Suspect]
     Active Substance: FLUTICASONE PROPIONATE
     Indication: LARYNGEAL CANCER
     Dosage: 2 PUFF(S)
     Route: 055
     Dates: start: 20000201

REACTIONS (4)
  - Wrong technique in device usage process [Unknown]
  - Product dose omission [Unknown]
  - Product storage error [Unknown]
  - Wrong technique in product usage process [Unknown]

NARRATIVE: CASE EVENT DATE: 20200210
